FAERS Safety Report 16044110 (Version 1)
Quarter: 2019Q1

REPORT INFORMATION
  Report Type: Spontaneous
  Country: US (occurrence: US)
  Receive Date: 20190306
  Receipt Date: 20190306
  Transmission Date: 20190418
  Serious: Yes (Other)
  Sender: FDA-Public Use
  Company Number: PHEH2019US009816

PATIENT
  Sex: Female

DRUGS (1)
  1. TASIGNA [Suspect]
     Active Substance: NILOTINIB
     Indication: CHRONIC MYELOID LEUKAEMIA
     Dosage: 300 MG, BID
     Route: 048
     Dates: start: 2011

REACTIONS (15)
  - Retroperitoneal haematoma [Unknown]
  - Tricuspid valve incompetence [Unknown]
  - Mitral valve incompetence [Unknown]
  - Atelectasis [Unknown]
  - Back pain [Unknown]
  - Peripheral vascular disorder [Unknown]
  - Arteriosclerosis [Unknown]
  - Pneumonia [Unknown]
  - Intervertebral disc degeneration [Unknown]
  - Pulmonary valve incompetence [Unknown]
  - Hypoaesthesia [Unknown]
  - Carotid artery stenosis [Unknown]
  - Neuropathy peripheral [Unknown]
  - Lumbar radiculopathy [Unknown]
  - Pleural effusion [Unknown]
